FAERS Safety Report 6251763-4 (Version None)
Quarter: 2009Q2

REPORT INFORMATION
  Report Type: 
  Country: None (occurrence: None)
  Receive Date: 20090630
  Receipt Date: 20090619
  Transmission Date: 20091009
  Serious: Yes (Other)
  Sender: FDA-Public Use
  Company Number: PHHY2009BR24775

PATIENT
  Sex: Male

DRUGS (4)
  1. DIOVAN HCT [Suspect]
     Indication: HYPERTENSION
     Dosage: 1TABLET (160/12.5 MG) DAILY
     Route: 048
     Dates: start: 19970101
  2. DIOVAN HCT [Suspect]
     Dosage: 2 TABLETS (160/12.5) MG DAILY
     Route: 048
     Dates: start: 20090619
  3. EUTHYROX [Concomitant]
     Indication: THYROID DISORDER
     Dosage: 1 TABLET (20 MG) DAILY
     Route: 048
     Dates: start: 20030101
  4. NIFEDIPAT [Concomitant]
     Indication: HYPERTENSION
     Dosage: 1 TABLET DAILY EVERY 12 HOURS
     Route: 048

REACTIONS (2)
  - BLOOD PRESSURE INADEQUATELY CONTROLLED [None]
  - THYROID DISORDER [None]
